FAERS Safety Report 22164341 (Version 2)
Quarter: 2023Q2

REPORT INFORMATION
  Report Type: Report from Study
  Country: MX (occurrence: MX)
  Receive Date: 20230403
  Receipt Date: 20230413
  Transmission Date: 20230721
  Serious: Yes (Other)
  Sender: FDA-Public Use
  Company Number: MX-002147023-NVSC2023MX075596

PATIENT
  Age: 72 Year
  Sex: Female

DRUGS (1)
  1. EXFORGE HCT [Suspect]
     Active Substance: AMLODIPINE BESYLATE\HYDROCHLOROTHIAZIDE\VALSARTAN
     Indication: Hypertension
     Dosage: 1 DOSAGE FORM, QD (5/160/12.5 MG) (MORE THAN 10 YEAR)
     Route: 048
     Dates: end: 202212

REACTIONS (8)
  - Spinal fracture [Recovered/Resolved]
  - Diabetes mellitus [Not Recovered/Not Resolved]
  - Headache [Not Recovered/Not Resolved]
  - Fall [Recovered/Resolved]
  - Anxiety [Recovered/Resolved]
  - Wrist fracture [Recovered/Resolved]
  - Blood pressure decreased [Recovered/Resolved]
  - Weight decreased [Recovered/Resolved]

NARRATIVE: CASE EVENT DATE: 20221101
